FAERS Safety Report 7290187-8 (Version None)
Quarter: 2011Q1

REPORT INFORMATION
  Report Type: 
  Country: None (occurrence: None)
  Receive Date: 20110214
  Receipt Date: 20110201
  Transmission Date: 20110831
  Serious: Yes (Other)
  Sender: FDA-Public Use
  Company Number: PHHY2011US08472

PATIENT
  Sex: Male

DRUGS (6)
  1. FOCALIN XR [Suspect]
     Dosage: 20 MG, QD
     Dates: start: 20100709
  2. FOCALIN XR [Suspect]
     Dosage: 5 MG, QD
     Route: 048
     Dates: start: 20100418
  3. FOCALIN XR [Suspect]
     Dosage: 20 MG, QD
     Dates: start: 20101001
  4. FOCALIN XR [Suspect]
     Dosage: 10 MG, QD
     Dates: start: 20100427
  5. FOCALIN XR [Suspect]
     Dosage: 15 MG, QD
     Dates: start: 20100507
  6. MIRALAX [Concomitant]
     Dosage: A SMALL AMOUNT QOD

REACTIONS (3)
  - DECREASED APPETITE [None]
  - SLEEP DISORDER [None]
  - BRONCHITIS [None]
